FAERS Safety Report 8361141-X (Version None)
Quarter: 2012Q2

REPORT INFORMATION
  Report Type: 
  Country: None (occurrence: None)
  Receive Date: 20120515
  Receipt Date: 20120430
  Transmission Date: 20120825
  Serious: Yes (Other)
  Sender: FDA-Public Use
  Company Number: FR-WATSON-2012-07671

PATIENT
  Age: 65 Year
  Sex: Male

DRUGS (2)
  1. ACETAMINOPHEN AND CODEINE PHOSPHATE [Suspect]
     Indication: PRODUCT USED FOR UNKNOWN INDICATION
     Dosage: UNK
     Route: 048
  2. ACETAMINOPHEN [Suspect]
     Indication: PRODUCT USED FOR UNKNOWN INDICATION
     Dosage: UP TO 10 G, DAILY
     Route: 048

REACTIONS (3)
  - OVERDOSE [None]
  - DRUG DEPENDENCE [None]
  - HYPERTENSION [None]
